FAERS Safety Report 8238607-6 (Version None)
Quarter: 2012Q1

REPORT INFORMATION
  Report Type: 
  Country: None (occurrence: None)
  Receive Date: 20120327
  Receipt Date: 20120326
  Transmission Date: 20120608
  Serious: Yes (Hospitalization)
  Sender: FDA-Public Use
  Company Number: US-BAYER-2012-024468

PATIENT
  Age: 18 Year
  Sex: Female

DRUGS (4)
  1. NUVARING [Concomitant]
     Indication: CONTRACEPTION
     Dosage: UNK
     Dates: start: 20070101
  2. BETASERON [Suspect]
     Indication: MULTIPLE SCLEROSIS
     Dosage: 0.3,MG, UNK
     Route: 058
  3. CONCERTA [Concomitant]
     Indication: ATTENTION DEFICIT/HYPERACTIVITY DISORDER
     Dosage: 54 MG, QD
     Dates: start: 20100101
  4. WELLBUTRIN [Concomitant]
     Indication: DEPRESSION
     Dosage: 100 MG, QD
     Dates: start: 20050101

REACTIONS (7)
  - BLOOD CREATININE INCREASED [None]
  - BACK PAIN [None]
  - VOMITING [None]
  - NAUSEA [None]
  - DEHYDRATION [None]
  - CREATININE RENAL CLEARANCE DECREASED [None]
  - HYPOKALAEMIA [None]
